FAERS Safety Report 10091860 (Version 2)
Quarter: 2014Q2

REPORT INFORMATION
  Report Type: Spontaneous
  Country: US (occurrence: US)
  Receive Date: 20140421
  Receipt Date: 20140421
  Transmission Date: 20141212
  Serious: No
  Sender: FDA-Public Use
  Company Number: US-GILEAD-2012-0064555

PATIENT
  Sex: Female

DRUGS (1)
  1. LETAIRIS [Suspect]
     Indication: COR PULMONALE CHRONIC
     Dosage: 5 MG, QD
     Route: 048
     Dates: start: 20121026

REACTIONS (8)
  - Hypotension [Unknown]
  - Middle insomnia [Unknown]
  - Dyspnoea [Unknown]
  - Respiratory disorder [Unknown]
  - Paraesthesia [Unknown]
  - Hyperhidrosis [Unknown]
  - Feeling hot [Unknown]
  - Dizziness [Unknown]
